FAERS Safety Report 25572377 (Version 2)
Quarter: 2025Q3

REPORT INFORMATION
  Report Type: Spontaneous
  Country: US (occurrence: US)
  Receive Date: 20250717
  Receipt Date: 20250729
  Transmission Date: 20251020
  Serious: Yes (Other)
  Sender: VERTEX
  Company Number: US-VERTEX PHARMACEUTICALS-2025-011424

PATIENT

DRUGS (1)
  1. TRIKAFTA [Suspect]
     Active Substance: ELEXACAFTOR\IVACAFTOR\TEZACAFTOR
     Indication: Cystic fibrosis
     Route: 048

REACTIONS (9)
  - Sinus operation [Unknown]
  - Abdominal distension [Unknown]
  - Migraine with aura [Not Recovered/Not Resolved]
  - Sinus congestion [Not Recovered/Not Resolved]
  - Lacrimation increased [Not Recovered/Not Resolved]
  - Sneezing [Not Recovered/Not Resolved]
  - Facial discomfort [Not Recovered/Not Resolved]
  - Head discomfort [Not Recovered/Not Resolved]
  - Paranasal sinus hypersecretion [Not Recovered/Not Resolved]
